FAERS Safety Report 16642887 (Version 1)
Quarter: 2019Q3

REPORT INFORMATION
  Report Type: Spontaneous
  Country: US (occurrence: US)
  Receive Date: 20190729
  Receipt Date: 20190729
  Transmission Date: 20191004
  Serious: Yes (Death, Hospitalization, Other)
  Sender: FDA-Public Use
  Company Number: PHEH2019US031148

PATIENT
  Age: 54 Year
  Sex: Female

DRUGS (12)
  1. VICODIN [Suspect]
     Active Substance: ACETAMINOPHEN\HYDROCODONE BITARTRATE
     Indication: PRODUCT USED FOR UNKNOWN INDICATION
     Dosage: UNK
     Route: 065
  2. VITAMIN D3 [Concomitant]
     Active Substance: CHOLECALCIFEROL
     Indication: PRODUCT USED FOR UNKNOWN INDICATION
     Dosage: 5000 OT, QD
     Route: 048
  3. MAXALT-MLT [Concomitant]
     Active Substance: RIZATRIPTAN BENZOATE
     Indication: MIGRAINE
     Dosage: 2 DF, PRN (1-2 TABLETS TO EXCEED 30 MG IN 24 HRS)
     Route: 048
     Dates: start: 20190503
  4. PALBOCICLIB [Suspect]
     Active Substance: PALBOCICLIB
     Indication: BREAST CANCER METASTATIC
     Dosage: 75 MG, QD (FOR 21 DAYS OF 28 DAYS)
     Route: 048
     Dates: start: 20190403, end: 2019
  5. ARMOUR THYROID [Concomitant]
     Active Substance: THYROID, PORCINE
     Indication: PRODUCT USED FOR UNKNOWN INDICATION
     Dosage: 1 DF, QD (90 MG TOTAL)
     Route: 048
     Dates: start: 20190410
  6. REGLAN [Concomitant]
     Active Substance: METOCLOPRAMIDE HYDROCHLORIDE
     Indication: PRODUCT USED FOR UNKNOWN INDICATION
     Dosage: 5 MG, TID
     Route: 065
     Dates: start: 20190320
  7. DULCOLAX NOS [Concomitant]
     Active Substance: BISACODYL OR DOCUSATE SODIUM
     Indication: PRODUCT USED FOR UNKNOWN INDICATION
     Dosage: 10 MG, PRN (10 MG, TOTAL/ AS NEEDED)
     Route: 054
     Dates: start: 20190217
  8. DILAUDID [Concomitant]
     Active Substance: HYDROMORPHONE HYDROCHLORIDE
     Indication: PAIN
     Dosage: 1 DF, Q4H
     Route: 048
     Dates: start: 20190217
  9. PALBOCICLIB [Suspect]
     Active Substance: PALBOCICLIB
     Dosage: 25 MG, QD
     Route: 048
     Dates: start: 2019
  10. DURAGESIC [Concomitant]
     Active Substance: FENTANYL
     Indication: PRODUCT USED FOR UNKNOWN INDICATION
     Dosage: 1 DF, UNK (PLACE 1 PATCH ONTO SKIN EVERY 3 RD DAY)
     Route: 062
     Dates: start: 20190319
  11. FEMARA [Suspect]
     Active Substance: LETROZOLE
     Indication: BREAST CANCER METASTATIC
     Dosage: 2.5 MG, QD
     Route: 048
     Dates: start: 20190204, end: 20190407
  12. KLOR-CON [Concomitant]
     Active Substance: POTASSIUM CHLORIDE
     Indication: PRODUCT USED FOR UNKNOWN INDICATION
     Dosage: 1 DF, QD (20 MEQ TOTAL)
     Route: 048
     Dates: start: 20190404

REACTIONS (15)
  - Metastases to liver [Fatal]
  - Nausea [Unknown]
  - Vomiting [Unknown]
  - Pancytopenia [Unknown]
  - Neutropenia [Recovered/Resolved]
  - Dehydration [Unknown]
  - Hypokalaemia [Unknown]
  - Drug eruption [Unknown]
  - Breast cancer stage IV [Fatal]
  - Leukopenia [Recovered/Resolved]
  - Malignant neoplasm progression [Fatal]
  - Metastases to bone [Fatal]
  - Insomnia [Unknown]
  - Hyponatraemia [Unknown]
  - Thrombocytopenia [Unknown]

NARRATIVE: CASE EVENT DATE: 20190329
